FAERS Safety Report 4905289-8 (Version None)
Quarter: 2006Q1

REPORT INFORMATION
  Report Type: 
  Country: None (occurrence: None)
  Receive Date: 20060207
  Receipt Date: 20060207
  Transmission Date: 20060701
  Serious: Yes (Death)
  Sender: FDA-Public Use
  Company Number: None

PATIENT
  Sex: Male

DRUGS (2)
  1. LEXAPRO [Suspect]
     Indication: SCHIZOPHRENIFORM DISORDER
     Dosage: 10 MG  DAILY  PO
     Route: 048
     Dates: start: 20041101, end: 20050618
  2. SEROQUEL [Suspect]
     Dosage: 800 MG  DAILY  PO
     Route: 048
     Dates: start: 20041101, end: 20050618

REACTIONS (5)
  - ACUTE MYOCARDIAL INFARCTION [None]
  - CARDIO-RESPIRATORY ARREST [None]
  - DYSPNOEA [None]
  - NAUSEA [None]
  - SUDDEN DEATH [None]
